FAERS Safety Report 7430787-5 (Version None)
Quarter: 2011Q2

REPORT INFORMATION
  Report Type: 
  Country: None (occurrence: None)
  Receive Date: 20110421
  Receipt Date: 20110418
  Transmission Date: 20111010
  Serious: Yes (Hospitalization)
  Sender: FDA-Public Use
  Company Number: US-ABBOTT-11P-163-0719718-00

PATIENT
  Sex: Female
  Weight: 47.67 kg

DRUGS (7)
  1. PENTASA [Concomitant]
     Indication: CROHN'S DISEASE
  2. VIVELLE-DOT [Concomitant]
     Indication: HORMONE REPLACEMENT THERAPY
  3. CITALOPRAM HYDROBROMIDE [Concomitant]
     Indication: ANXIETY
  4. HUMIRA [Suspect]
     Indication: CROHN'S DISEASE
     Dates: start: 20100901
  5. VITAMIN B-12 [Concomitant]
     Indication: PRODUCT USED FOR UNKNOWN INDICATION
     Route: 050
  6. ALPRAZOLAM [Concomitant]
     Indication: SLEEP DISORDER
  7. DICYCLOMINE [Concomitant]
     Indication: CROHN'S DISEASE

REACTIONS (1)
  - INTESTINAL OBSTRUCTION [None]
